FAERS Safety Report 5568913-5 (Version None)
Quarter: 2007Q4

REPORT INFORMATION
  Report Type: 
  Country: None (occurrence: None)
  Receive Date: 20071220
  Receipt Date: 20070503
  Transmission Date: 20080405
  Serious: No
  Sender: FDA-Public Use
  Company Number: A0643684A

PATIENT
  Age: 59 Year
  Sex: Male

DRUGS (5)
  1. AVODART [Suspect]
     Indication: BENIGN PROSTATIC HYPERPLASIA
     Dosage: .5MG PER DAY
     Route: 048
     Dates: start: 20061201
  2. FLOMAX [Concomitant]
  3. VITAMIN [Concomitant]
  4. SAW PALMETTO [Concomitant]
  5. UROXATRAL [Concomitant]

REACTIONS (4)
  - ERECTILE DYSFUNCTION [None]
  - LIBIDO DECREASED [None]
  - PARAESTHESIA [None]
  - PROSTATIC SPECIFIC ANTIGEN INCREASED [None]
